FAERS Safety Report 11211179 (Version 2)
Quarter: 2015Q3

REPORT INFORMATION
  Report Type: Spontaneous
  Country: FR (occurrence: FR)
  Receive Date: 20150623
  Receipt Date: 20150709
  Transmission Date: 20151125
  Serious: Yes (Hospitalization)
  Sender: FDA-Public Use
  Company Number: FR-PFIZER INC-2015200622

PATIENT
  Age: 80 Year
  Sex: Female

DRUGS (6)
  1. PYOSTACINE [Concomitant]
     Active Substance: PRISTINAMYCIN
     Indication: ABSCESS
     Dosage: 1000 MG, 3X/DAY
     Route: 048
     Dates: start: 20150423, end: 20150504
  2. TEMERIT [Suspect]
     Active Substance: NEBIVOLOL
     Indication: ACUTE PULMONARY OEDEMA
     Dosage: 25 MG, DAILY
     Route: 048
     Dates: start: 20150516, end: 20150519
  3. DALACINE [Suspect]
     Active Substance: CLINDAMYCIN HYDROCHLORIDE
     Indication: OSTEITIS
     Dosage: 2400 MG, DAILY (900 MG IN THE MORNING, 600 MG AT NOON, 900 MG IN THE EVENING)
     Route: 048
     Dates: start: 20150504, end: 20150518
  4. ORBENINE [Suspect]
     Active Substance: CLOXACILLIN SODIUM
     Indication: OSTEITIS
     Dosage: 2 DF, 3X/DAY
     Route: 042
     Dates: start: 20150504, end: 20150510
  5. RIFADINE [Suspect]
     Active Substance: RIFAMPIN
     Indication: OSTEITIS
     Dosage: 600 MG, 2X/DAY
     Route: 048
     Dates: start: 20150511, end: 20150518
  6. RULID [Suspect]
     Active Substance: ROXITHROMYCIN
     Indication: LUNG DISORDER
     Dosage: 1 DF, 2X/DAY
     Route: 048
     Dates: start: 20150516, end: 20150518

REACTIONS (2)
  - Jaundice [Recovered/Resolved]
  - Cell death [Recovered/Resolved]

NARRATIVE: CASE EVENT DATE: 20150518
